FAERS Safety Report 4652367-7 (Version None)
Quarter: 2005Q2

REPORT INFORMATION
  Report Type: 
  Country: None (occurrence: None)
  Receive Date: 20050502
  Receipt Date: 20050502
  Transmission Date: 20051028
  Serious: Yes (Disabling)
  Sender: FDA-Public Use
  Company Number: None

PATIENT
  Age: 60 Year
  Sex: Female
  Weight: 65.7716 kg

DRUGS (1)
  1. LEVAQUIN [Suspect]
     Dosage: 500 MG ORAL
     Route: 048

REACTIONS (6)
  - ARTHRALGIA [None]
  - CHEST WALL PAIN [None]
  - INSOMNIA [None]
  - NIGHTMARE [None]
  - PSYCHOTIC DISORDER [None]
  - TINNITUS [None]
